FAERS Safety Report 11373236 (Version 1)
Quarter: 2015Q3

REPORT INFORMATION
  Report Type: Spontaneous
  Country: US (occurrence: US)
  Receive Date: 20150811
  Receipt Date: 20150811
  Transmission Date: 20151125
  Serious: No
  Sender: FDA-Public Use
  Company Number: US-ELI_LILLY_AND_COMPANY-US201208006847

PATIENT
  Age: 30 Year
  Sex: Male

DRUGS (2)
  1. CIALIS [Suspect]
     Active Substance: TADALAFIL
     Indication: HYPERTENSION
     Dosage: 15 MG, QD
     Dates: end: 20120815
  2. TESTOSTERONE. [Concomitant]
     Active Substance: TESTOSTERONE

REACTIONS (3)
  - Mood altered [Unknown]
  - Off label use [Recovered/Resolved]
  - Dyspnoea [Unknown]

NARRATIVE: CASE EVENT DATE: 201208
